FAERS Safety Report 8362054-X (Version None)
Quarter: 2012Q2

REPORT INFORMATION
  Report Type: 
  Country: None (occurrence: None)
  Receive Date: 20120515
  Receipt Date: 20120502
  Transmission Date: 20120825
  Serious: Yes (Hospitalization)
  Sender: FDA-Public Use
  Company Number: US-ENDO PHARMACEUTICALS INC.-MECL20120001

PATIENT
  Age: 87 Year
  Sex: Female

DRUGS (1)
  1. MECLIZINE HCL [Suspect]
     Indication: INNER EAR DISORDER
     Dosage: UNK
     Route: 048

REACTIONS (3)
  - HIP FRACTURE [None]
  - FALL [None]
  - DIZZINESS [None]
